FAERS Safety Report 13089051 (Version 1)
Quarter: 2017Q1

REPORT INFORMATION
  Report Type: Spontaneous
  Country: US (occurrence: US)
  Receive Date: 20170105
  Receipt Date: 20170105
  Transmission Date: 20170428
  Serious: No
  Sender: FDA-Public Use
  Company Number: US-PERRIGO-16US018970

PATIENT
  Age: 53 Year
  Sex: Female
  Weight: 81.63 kg

DRUGS (1)
  1. GUAIFENESIN. [Suspect]
     Active Substance: GUAIFENESIN
     Indication: FIBROMYALGIA
     Dosage: 600 MG, QD
     Route: 048
     Dates: start: 201407

REACTIONS (2)
  - Incorrect drug administration duration [Unknown]
  - Off label use [Unknown]

NARRATIVE: CASE EVENT DATE: 201407
